FAERS Safety Report 22808639 (Version 2)
Quarter: 2023Q4

REPORT INFORMATION
  Report Type: Spontaneous
  Country: US (occurrence: US)
  Receive Date: 20230810
  Receipt Date: 20231002
  Transmission Date: 20240110
  Serious: Yes (Other)
  Sender: FDA-Public Use
  Company Number: US-BAYER-2023A111569

PATIENT
  Age: 72 Year
  Sex: Male

DRUGS (2)
  1. KOVALTRY [Suspect]
     Active Substance: ANTIHEMOPHILIC FACTOR, HUMAN RECOMBINANT
     Indication: Haemarthrosis
     Dosage: INFUSE 1800 UNITS (+/- 10%) EVERY 12 HOURS AS NEEDED FOR MODERATE TO SEVERE BLEEDS
  2. KOVALTRY [Suspect]
     Active Substance: ANTIHEMOPHILIC FACTOR, HUMAN RECOMBINANT
     Indication: Haemarthrosis
     Dosage: 3 DF, TO TREAT RIGHT HIP BLEED AND LEFT ELBOW BLEED

REACTIONS (5)
  - Haemarthrosis [Recovered/Resolved]
  - Haemarthrosis [Recovered/Resolved]
  - Haemarthrosis [Not Recovered/Not Resolved]
  - Fall [Recovered/Resolved]
  - Contusion [None]

NARRATIVE: CASE EVENT DATE: 20230727
